FAERS Safety Report 8289431-X (Version None)
Quarter: 2012Q2

REPORT INFORMATION
  Report Type: 
  Country: None (occurrence: None)
  Receive Date: 20120417
  Receipt Date: 20120409
  Transmission Date: 20120825
  Serious: Yes (Disabling, Other)
  Sender: FDA-Public Use
  Company Number: US-ASTRAZENECA-2012SE01691

PATIENT
  Age: 59 Year
  Sex: Male

DRUGS (52)
  1. NEXIUM [Suspect]
     Route: 048
     Dates: start: 20020901
  2. NEXIUM [Suspect]
     Route: 048
     Dates: start: 20020901
  3. PRILOSEC [Suspect]
     Route: 048
     Dates: start: 20020901
  4. ACE INHIBITOR [Concomitant]
     Dosage: LOW DOSE
  5. HEPARIN [Concomitant]
     Indication: DEEP VEIN THROMBOSIS
  6. ASPIRIN [Concomitant]
     Indication: CHEST PAIN
  7. VIOXX [Concomitant]
     Dates: start: 20020101
  8. GLUCOTROL XL [Concomitant]
     Dates: start: 20010101
  9. PROZAC [Concomitant]
     Dates: start: 20010101
  10. STATIN [Concomitant]
     Indication: HYPERLIPIDAEMIA
  11. NEXIUM [Suspect]
     Indication: GASTROOESOPHAGEAL REFLUX DISEASE
     Route: 048
     Dates: start: 20010101
  12. NEXIUM [Suspect]
     Indication: PAIN MANAGEMENT
     Route: 048
     Dates: start: 20010101
  13. NEXIUM [Suspect]
     Route: 048
     Dates: start: 20020901
  14. PRILOSEC [Suspect]
     Indication: ANXIETY
     Route: 048
     Dates: start: 20010101
  15. PRILOSEC [Suspect]
     Route: 048
     Dates: start: 20020901
  16. PRILOSEC [Suspect]
     Route: 048
     Dates: start: 20020901
  17. CELEBREX [Concomitant]
     Dosage: 200/100
     Dates: start: 20020101
  18. LIPITOR [Concomitant]
     Dosage: 10MG/20MG/40MG
     Dates: start: 20010101
  19. CYCLOBENZAPRIN HCL [Concomitant]
     Dates: start: 20010101
  20. NITROGLYCERIN [Concomitant]
  21. NEXIUM [Suspect]
     Indication: DYSPEPSIA
     Route: 048
     Dates: start: 20010101
  22. NEXIUM [Suspect]
     Route: 048
     Dates: start: 20020901
  23. PRILOSEC [Suspect]
     Route: 048
     Dates: start: 20020901
  24. BEXTRA [Concomitant]
     Dates: start: 20020101
  25. NAPROXEN [Concomitant]
     Dates: start: 20020101
  26. MOBIC [Concomitant]
     Dates: start: 20010101
  27. SYMBALTA [Concomitant]
     Dates: start: 20010101
  28. ACTOPLUS MET [Concomitant]
     Dosage: 15MG/500MG
     Dates: start: 20010101
  29. CEPHALEXIN [Concomitant]
     Dates: start: 20010101
  30. NEXIUM [Suspect]
     Indication: HYPERSENSITIVITY
     Route: 048
     Dates: start: 20010101
  31. NEXIUM [Suspect]
     Route: 048
     Dates: start: 20020901
  32. PRILOSEC [Suspect]
     Indication: GASTROOESOPHAGEAL REFLUX DISEASE
     Route: 048
     Dates: start: 20010101
  33. PRILOSEC [Suspect]
     Route: 048
     Dates: start: 20020901
  34. VYTORIN [Concomitant]
     Dosage: 10/20
     Dates: start: 20010101
  35. VIAGRA [Concomitant]
     Dates: start: 20010101
  36. PRISTIQ [Concomitant]
     Dates: start: 20010101
  37. NEXIUM [Suspect]
     Route: 048
     Dates: start: 20020901
  38. PRILOSEC [Suspect]
     Indication: DYSPEPSIA
     Route: 048
     Dates: start: 20010101
  39. COZOR [Concomitant]
     Dates: start: 20010101
  40. JANUMET [Concomitant]
     Dosage: 50/500MG
     Dates: start: 20010101
  41. GLUCOPHAGE [Concomitant]
     Dates: start: 20010101
  42. PALGIC [Concomitant]
     Dates: start: 20010101
  43. ACIPHEX [Concomitant]
     Dates: start: 20010101
  44. PROTON PUMP INHIBITOR [Concomitant]
  45. HEPARIN [Concomitant]
     Indication: CHEST PAIN
  46. NEXIUM [Suspect]
     Indication: DEPRESSION
     Route: 048
     Dates: start: 20010101
  47. NEXIUM [Suspect]
     Indication: ANXIETY
     Route: 048
     Dates: start: 20010101
  48. PRILOSEC [Suspect]
     Indication: PAIN MANAGEMENT
     Route: 048
     Dates: start: 20010101
  49. PRILOSEC [Suspect]
     Indication: DEPRESSION
     Route: 048
     Dates: start: 20010101
  50. CIALIS [Concomitant]
     Dates: start: 20010101
  51. ZICAM [Concomitant]
     Dates: start: 20010101
  52. CLARITIN-D [Concomitant]
     Dates: start: 20010101

REACTIONS (26)
  - CEREBROVASCULAR ACCIDENT [None]
  - BONE DENSITY DECREASED [None]
  - MUSCULOSKELETAL DISORDER [None]
  - ARTHRALGIA [None]
  - THROMBOSIS [None]
  - DEPRESSION [None]
  - DISTURBANCE IN ATTENTION [None]
  - BONE PAIN [None]
  - URINARY TRACT INFECTION [None]
  - PARAESTHESIA [None]
  - MEMORY IMPAIRMENT [None]
  - BONE DISORDER [None]
  - MYOCARDIAL INFARCTION [None]
  - FEELINGS OF WORTHLESSNESS [None]
  - ISCHAEMIC STROKE [None]
  - ABDOMINAL DISCOMFORT [None]
  - HYPOAESTHESIA [None]
  - HYPOKINESIA [None]
  - ANGINA UNSTABLE [None]
  - HEMIPLEGIA [None]
  - CARDIAC ARREST [None]
  - DEFORMITY [None]
  - ANXIETY [None]
  - INTERVERTEBRAL DISC INJURY [None]
  - ERECTILE DYSFUNCTION [None]
  - ASTHENIA [None]
